FAERS Safety Report 9401162 (Version 3)
Quarter: 2013Q3

REPORT INFORMATION
  Report Type: Spontaneous
  Country: US (occurrence: US)
  Receive Date: 20130715
  Receipt Date: 20130830
  Transmission Date: 20140515
  Serious: Yes (Hospitalization, Other)
  Sender: FDA-Public Use
  Company Number: US-ASTRAZENECA-2013SE51050

PATIENT
  Age: 49 Year
  Sex: Female

DRUGS (25)
  1. SEROQUEL [Suspect]
     Indication: BIPOLAR DISORDER
     Route: 048
     Dates: start: 1996
  2. SEROQUEL [Suspect]
     Indication: BIPOLAR DISORDER
     Route: 048
     Dates: start: 20120201, end: 20120302
  3. SEROQUEL [Suspect]
     Indication: BIPOLAR DISORDER
     Route: 048
     Dates: start: 20121023, end: 20121106
  4. SEROQUEL [Suspect]
     Indication: BIPOLAR DISORDER
     Route: 048
     Dates: start: 20121105, end: 20121205
  5. SEROQUEL [Suspect]
     Indication: BIPOLAR DISORDER
     Route: 048
     Dates: start: 20121221, end: 20130104
  6. SEROQUEL [Suspect]
     Indication: BIPOLAR DISORDER
     Route: 048
     Dates: start: 20130103, end: 20130117
  7. SEROQUEL [Suspect]
     Indication: BIPOLAR DISORDER
     Route: 048
     Dates: start: 20130118, end: 20130201
  8. SEROQUEL [Suspect]
     Indication: BIPOLAR DISORDER
     Route: 048
     Dates: start: 20130221, end: 20130323
  9. SEROQUEL [Suspect]
     Indication: BIPOLAR DISORDER
     Route: 048
     Dates: start: 20130301, end: 20130331
  10. SEROQUEL [Suspect]
     Indication: BIPOLAR DISORDER
     Route: 048
     Dates: start: 20130320, end: 20130419
  11. SEROQUEL [Suspect]
     Indication: BIPOLAR DISORDER
     Route: 048
     Dates: start: 20130516, end: 20130615
  12. SEROQUEL [Suspect]
     Indication: BIPOLAR DISORDER
     Route: 048
     Dates: start: 20130620, end: 20130624
  13. SEROQUEL [Suspect]
     Indication: BIPOLAR DISORDER
     Route: 048
     Dates: start: 20130624
  14. SEROQUEL [Suspect]
     Indication: BIPOLAR DISORDER
     Dosage: 1 TABLET 4X PER DAY, TAKING TOTAL OF 800MG PER DAY
     Route: 048
  15. ANTIBIOTIC [Suspect]
     Route: 065
  16. ZYPREXA [Suspect]
     Route: 065
  17. DEPAKOTE [Concomitant]
     Indication: CONVULSION
  18. VALIUM [Concomitant]
  19. TRAMADOL [Concomitant]
     Indication: PAIN
  20. HYDROCODONE [Concomitant]
     Indication: PAIN
  21. SINGULAR [Concomitant]
  22. VITAMIN D [Concomitant]
  23. CELEBREX [Concomitant]
  24. IBUPROFEN [Concomitant]
  25. CODEINE [Concomitant]

REACTIONS (18)
  - Clostridium difficile infection [Unknown]
  - Vomiting [Unknown]
  - Convulsion [Unknown]
  - Petit mal epilepsy [Unknown]
  - Grand mal convulsion [Unknown]
  - Glucose tolerance impaired [Unknown]
  - Visual impairment [Unknown]
  - Erythema [Unknown]
  - Mania [Unknown]
  - Hangover [Unknown]
  - Cardiac disorder [Unknown]
  - Metabolic syndrome [Unknown]
  - Weight increased [Not Recovered/Not Resolved]
  - Dry mouth [Unknown]
  - Local swelling [Unknown]
  - Tremor [Unknown]
  - Off label use [Unknown]
  - Intentional drug misuse [Unknown]
